FAERS Safety Report 8046102-2 (Version None)
Quarter: 2012Q1

REPORT INFORMATION
  Report Type: 
  Country: None (occurrence: None)
  Receive Date: 20120113
  Receipt Date: 20120110
  Transmission Date: 20120608
  Serious: No
  Sender: FDA-Public Use
  Company Number: US-PFIZER INC-2012007884

PATIENT
  Sex: Female
  Weight: 95.238 kg

DRUGS (8)
  1. XANAX [Concomitant]
     Dosage: 0.5 MG, UNK
  2. LYRICA [Suspect]
     Dosage: 75 MG, 1X/DAY
     Route: 048
     Dates: start: 20090101
  3. LANTUS [Concomitant]
     Dosage: UNK
  4. SYNTHROID [Concomitant]
     Dosage: UNK
  5. LYRICA [Suspect]
     Indication: NEUROPATHY PERIPHERAL
     Dosage: 50 MG, 1X/DAY
     Route: 048
     Dates: start: 20090101, end: 20090101
  6. LIDODERM [Concomitant]
     Dosage: UNK
  7. INSULIN [Concomitant]
     Dosage: UNK
  8. HYDROCHLOROTHIAZIDE [Concomitant]
     Dosage: 12.5 MG, UNK

REACTIONS (2)
  - DRUG INEFFECTIVE [None]
  - WEIGHT INCREASED [None]
